FAERS Safety Report 10543607 (Version 1)
Quarter: 2014Q4

REPORT INFORMATION
  Report Type: Spontaneous
  Country: US (occurrence: None)
  Receive Date: 20141023
  Receipt Date: 20141023
  Transmission Date: 20150529
  Serious: Yes (Death, Hospitalization)
  Sender: FDA-Public Use
  Company Number: QSC-2014-0740

PATIENT
  Age: 75 Year
  Sex: Female

DRUGS (10)
  1. ATORVASTATIN [Concomitant]
     Active Substance: ATORVASTATIN
  2. METOPROLOL [Concomitant]
     Active Substance: METOPROLOL
  3. L-THYROXINE /00068001/ [Concomitant]
  4. FUROSEMIDE. [Concomitant]
     Active Substance: FUROSEMIDE
  5. PIPERACILLIN [Concomitant]
     Active Substance: PIPERACILLIN
  6. WARFARIN [Concomitant]
     Active Substance: WARFARIN
  7. METOLAZONE. [Concomitant]
     Active Substance: METOLAZONE
  8. PANTOPRAZOLE [Concomitant]
     Active Substance: PANTOPRAZOLE SODIUM
  9. H.P. ACTHAR [Suspect]
     Active Substance: CORTICOTROPIN
     Indication: GLOMERULONEPHRITIS MEMBRANOUS
     Dosage: 80 UNITS, BIW, SUBCUTANEOUS
     Route: 058
     Dates: start: 201409, end: 20141002
  10. RITUXIMAB [Suspect]
     Active Substance: RITUXIMAB

REACTIONS (5)
  - Anticoagulation drug level above therapeutic [None]
  - Sudden death [None]
  - International normalised ratio increased [None]
  - Cardio-respiratory arrest [None]
  - Myocardial infarction [None]

NARRATIVE: CASE EVENT DATE: 20140927
